FAERS Safety Report 5009155-1 (Version None)
Quarter: 2006Q2

REPORT INFORMATION
  Report Type: 
  Country: None (occurrence: None)
  Receive Date: 20060519
  Receipt Date: 20060510
  Transmission Date: 20061013
  Serious: Yes (Hospitalization)
  Sender: FDA-Public Use
  Company Number: RB-3271-2006

PATIENT
  Age: 33 Year
  Sex: Female
  Weight: 58.514 kg

DRUGS (9)
  1. SUBOXONE [Suspect]
     Indication: DRUG DEPENDENCE
     Dosage: 8 MG DAILY SL
     Route: 060
     Dates: start: 20060117, end: 20060124
  2. SUBOXONE [Suspect]
     Indication: DRUG DEPENDENCE
     Dosage: 16 MG DAILY SL
     Route: 060
     Dates: start: 20060125, end: 20060419
  3. SUBOXONE [Suspect]
     Indication: DRUG DEPENDENCE
     Dosage: 18 MG DAILY SL
     Route: 060
     Dates: start: 20060420, end: 20060508
  4. NEURONTIN [Concomitant]
  5. MORPHINE [Concomitant]
  6. PERCOET [Concomitant]
  7. DEMEROL [Concomitant]
  8. DILAUDID [Concomitant]
  9. METHADONE HCL [Concomitant]

REACTIONS (6)
  - DRUG DOSE OMISSION [None]
  - DRUG INEFFECTIVE [None]
  - INSOMNIA [None]
  - NAUSEA [None]
  - NEPHROLITHIASIS [None]
  - SELF-MEDICATION [None]
